FAERS Safety Report 23096903 (Version 1)
Quarter: 2023Q4

REPORT INFORMATION
  Report Type: Spontaneous
  Country: FR (occurrence: FR)
  Receive Date: 20231023
  Receipt Date: 20231023
  Transmission Date: 20240110
  Serious: Yes (Other)
  Sender: FDA-Public Use
  Company Number: FR-PFIZER INC-202300328672

PATIENT
  Age: 7 Year
  Sex: Female

DRUGS (9)
  1. CARBOPLATIN [Suspect]
     Active Substance: CARBOPLATIN
     Indication: Retinoblastoma
     Dosage: 2 CYCLES
     Route: 042
  2. CARBOPLATIN [Suspect]
     Active Substance: CARBOPLATIN
     Dosage: 2 CYCLES
     Route: 042
  3. VINCRISTINE SULFATE [Suspect]
     Active Substance: VINCRISTINE SULFATE
     Indication: Retinoblastoma
     Dosage: 2 INJECTIONS
     Route: 042
  4. ETOPOSIDE [Suspect]
     Active Substance: ETOPOSIDE
     Indication: Retinoblastoma
     Dosage: 2 CYCLIC
     Route: 042
  5. MELPHALAN [Suspect]
     Active Substance: MELPHALAN
     Indication: Retinoblastoma
     Dosage: 0.06 MG
  6. MELPHALAN [Suspect]
     Active Substance: MELPHALAN
     Dosage: 0.06 MG
  7. MELPHALAN [Suspect]
     Active Substance: MELPHALAN
     Dosage: 5 MG (4 MONTHLY INJECTIONS)
     Route: 013
  8. CYCLOPHOSPHAMIDE [Suspect]
     Active Substance: CYCLOPHOSPHAMIDE
     Indication: Retinoblastoma
     Dosage: 2 INJECTIONS
     Route: 042
  9. IODINE I-125 [Suspect]
     Active Substance: IODINE I-125
     Indication: Retinoblastoma
     Dosage: 45 GY AT 6

REACTIONS (5)
  - Iris atrophy [Recovered/Resolved]
  - Cataract [Recovered/Resolved]
  - Iris adhesions [Recovered/Resolved]
  - Off label use [Unknown]
  - Off label use [Unknown]
